FAERS Safety Report 7056231-8 (Version None)
Quarter: 2010Q4

REPORT INFORMATION
  Report Type: 
  Country: None (occurrence: None)
  Receive Date: 20101021
  Receipt Date: 20101008
  Transmission Date: 20110411
  Serious: Yes (Other)
  Sender: FDA-Public Use
  Company Number: PHHY2010JP68834

PATIENT
  Sex: Female

DRUGS (1)
  1. FEMARA [Suspect]
     Indication: OVULATION INDUCTION
     Dosage: UNK
     Route: 048

REACTIONS (2)
  - DRUG EXPOSURE BEFORE PREGNANCY [None]
  - STILLBIRTH [None]
